FAERS Safety Report 9009082 (Version 1)
Quarter: 2013Q1

REPORT INFORMATION
  Report Type: Spontaneous
  Country: MX (occurrence: MX)
  Receive Date: 20130111
  Receipt Date: 20130111
  Transmission Date: 20140127
  Serious: Yes (Death, Hospitalization)
  Sender: FDA-Public Use
  Company Number: MX-UCBSA-074734

PATIENT
  Age: 78 Year
  Sex: Male
  Weight: 70 kg

DRUGS (1)
  1. NUBRENZA [Suspect]
     Indication: PARKINSONISM
     Route: 062
     Dates: start: 20110323, end: 20110907

REACTIONS (2)
  - Respiratory arrest [Fatal]
  - Pneumonia [Fatal]
